FAERS Safety Report 9695557 (Version 2)
Quarter: 2013Q4

REPORT INFORMATION
  Report Type: Spontaneous
  Country: IT (occurrence: IT)
  Receive Date: 20131119
  Receipt Date: 20131202
  Transmission Date: 20140711
  Serious: Yes (Other)
  Sender: FDA-Public Use
  Company Number: IT-009507513-1311ITA004873

PATIENT
  Age: 74 Year
  Sex: Female

DRUGS (7)
  1. ADROVANCE [Suspect]
     Indication: OSTEOPOROSIS
     Dosage: 70 MG + 70 MCG, WEEKLY
     Route: 048
     Dates: start: 20130505
  2. MESTINON [Suspect]
     Indication: OCULAR MYASTHENIA
     Dosage: 60 MG, DAILY
     Route: 048
     Dates: start: 20131028, end: 20131029
  3. MESTINON [Suspect]
     Dosage: UNK
     Route: 048
     Dates: start: 20131104
  4. LOSAZID 50MG + 12,5MG COMPRESSE RIVESTITE CON FILM [Concomitant]
     Dosage: UNK
     Route: 048
  5. TIKLID [Concomitant]
     Dosage: UNK
     Route: 048
  6. TORVAST [Concomitant]
     Dosage: UNK
     Route: 048
  7. DIDROGYL [Concomitant]
     Dosage: UNK
     Route: 048

REACTIONS (4)
  - Dyspnoea [Recovered/Resolved]
  - Gastrointestinal disorder [Not Recovered/Not Resolved]
  - Diarrhoea [Recovered/Resolved]
  - Abdominal pain upper [Recovered/Resolved]
